FAERS Safety Report 6888342-1 (Version None)
Quarter: 2010Q3

REPORT INFORMATION
  Report Type: 
  Country: None (occurrence: None)
  Receive Date: 20100730
  Receipt Date: 20100622
  Transmission Date: 20110219
  Serious: Yes (Death, Hospitalization, Other)
  Sender: FDA-Public Use
  Company Number: US-BAXTER-2010BH001621

PATIENT
  Age: 56 Year
  Sex: Male

DRUGS (4)
  1. HEPARIN SODIUM [Suspect]
     Indication: HAEMODIALYSIS
     Route: 010
     Dates: start: 20071101, end: 20080405
  2. VALSARTAN [Concomitant]
     Indication: PRODUCT USED FOR UNKNOWN INDICATION
     Route: 065
  3. VICODIN [Concomitant]
     Indication: PRODUCT USED FOR UNKNOWN INDICATION
     Route: 065
  4. MULTI-VITAMINS [Concomitant]
     Indication: PRODUCT USED FOR UNKNOWN INDICATION
     Route: 065

REACTIONS (15)
  - CEREBROVASCULAR ACCIDENT [None]
  - CHEST PAIN [None]
  - CONVULSION [None]
  - DECREASED APPETITE [None]
  - DIARRHOEA [None]
  - DYSPNOEA [None]
  - HYPERTENSION [None]
  - HYPOTENSION [None]
  - INSOMNIA [None]
  - MENTAL STATUS CHANGES [None]
  - NAUSEA [None]
  - THROMBOSIS [None]
  - VISION BLURRED [None]
  - VOMITING [None]
  - WEIGHT DECREASED [None]
